FAERS Safety Report 6209687-4 (Version None)
Quarter: 2009Q2

REPORT INFORMATION
  Report Type: 
  Country: None (occurrence: None)
  Receive Date: 20090601
  Receipt Date: 20070530
  Transmission Date: 20091009
  Serious: Yes (Hospitalization, Other)
  Sender: FDA-Public Use
  Company Number: US-ASTRAZENECA-2006UW24470

PATIENT
  Age: 55 Year
  Sex: Female
  Weight: 70.3 kg

DRUGS (27)
  1. SEROQUEL [Suspect]
     Indication: DEPRESSION
     Route: 048
     Dates: start: 20000901, end: 20050801
  2. SEROQUEL [Suspect]
     Indication: SLEEP DISORDER
     Route: 048
     Dates: start: 20000901, end: 20050801
  3. SEROQUEL [Suspect]
     Dosage: 100MG - 300MG
     Route: 048
     Dates: start: 20000914
  4. SEROQUEL [Suspect]
     Dosage: 100MG - 300MG
     Route: 048
     Dates: start: 20000914
  5. PROLIXIN [Concomitant]
     Dates: start: 20040101
  6. HALDOL [Concomitant]
  7. NAVANE [Concomitant]
  8. RISPERDAL [Concomitant]
     Dates: start: 19980901
  9. ZYPREXA [Concomitant]
     Dates: start: 19970101
  10. THORAZINE [Concomitant]
     Dates: start: 19960101
  11. METFORMIN HCL [Concomitant]
     Route: 048
  12. LAMICTAL [Concomitant]
     Dosage: 25 MG- 150 MG
  13. CLONIDINE [Concomitant]
  14. SYNTHROID [Concomitant]
  15. PREMARIN [Concomitant]
     Route: 048
  16. DEPAKOTE [Concomitant]
     Dosage: 125 MG - 500 MG
     Route: 048
  17. MIRAPEX [Concomitant]
  18. RESTORIL [Concomitant]
  19. ATENOLOL [Concomitant]
     Route: 048
  20. LISINOPRIL [Concomitant]
     Route: 048
  21. NAPROXEN [Concomitant]
  22. FLUPHENAZINE [Concomitant]
     Dosage: 1 MG - 5 MG
  23. FOSINOPRIL SODIUM [Concomitant]
  24. LIPITOR [Concomitant]
     Dosage: 5 MG - 10 MG
     Route: 048
  25. ATIVAN [Concomitant]
  26. LASIX [Concomitant]
  27. CELEBREX [Concomitant]

REACTIONS (8)
  - ADENOCARCINOMA [None]
  - BLOOD TRIGLYCERIDES INCREASED [None]
  - DIABETES MELLITUS [None]
  - LUNG NEOPLASM MALIGNANT [None]
  - LUNG OPERATION [None]
  - NON-SMALL CELL LUNG CANCER STAGE II [None]
  - OVARIAN CYST [None]
  - TYPE 2 DIABETES MELLITUS [None]
